FAERS Safety Report 7498901-3 (Version None)
Quarter: 2011Q2

REPORT INFORMATION
  Report Type: 
  Country: None (occurrence: None)
  Receive Date: 20110524
  Receipt Date: 20110520
  Transmission Date: 20111010
  Serious: Yes (Death)
  Sender: FDA-Public Use
  Company Number: US-ASTRAZENECA-2011SE30903

PATIENT
  Age: 31 Year
  Sex: Male

DRUGS (1)
  1. PULMICORT [Suspect]
     Route: 055

REACTIONS (1)
  - RESPIRATORY FAILURE [None]
